FAERS Safety Report 13242390 (Version 1)
Quarter: 2017Q1

REPORT INFORMATION
  Report Type: Report from Study
  Country: DK (occurrence: DK)
  Receive Date: 20170216
  Receipt Date: 20170216
  Transmission Date: 20170428
  Serious: Yes (Hospitalization)
  Sender: FDA-Public Use
  Company Number: DK-TEVA-739351ISR

PATIENT

DRUGS (11)
  1. GABAPENTIN. [Suspect]
     Active Substance: GABAPENTIN
     Dosage: 300 MILLIGRAM DAILY;
     Route: 048
  2. PARACETAMOL [Concomitant]
     Active Substance: ACETAMINOPHEN
     Indication: PROCEDURAL PAIN
     Dosage: 2 GRAM DAILY;
     Route: 048
  3. MORPHINE [Concomitant]
     Active Substance: MORPHINE
     Indication: PAIN
     Dosage: 20 MILLIGRAM DAILY; PATIENT BELOW 70 YEARS
     Route: 048
  4. MORPHINE [Concomitant]
     Active Substance: MORPHINE
     Route: 042
  5. BUPIVACAINE. [Concomitant]
     Active Substance: BUPIVACAINE
     Indication: ANAESTHESIA
     Dosage: GIVEN LUMBAR SPINAL
  6. OXYCODONE [Concomitant]
     Active Substance: OXYCODONE
     Indication: ANALGESIC THERAPY
  7. CELECOXIB. [Concomitant]
     Active Substance: CELECOXIB
     Indication: ANALGESIC THERAPY
     Dosage: PRE OPERATIVE
  8. GABAPENTIN. [Suspect]
     Active Substance: GABAPENTIN
     Indication: PROCEDURAL PAIN
     Dosage: 600 MILLIGRAM DAILY;
     Route: 048
  9. CELECOXIB. [Concomitant]
     Active Substance: CELECOXIB
     Dosage: 400 MILLIGRAM DAILY; POST-OPERATIVE FROM DAY 1-6
  10. KETOBEMIDONE [Concomitant]
     Active Substance: KETOBEMIDONE
  11. MORPHINE [Concomitant]
     Active Substance: MORPHINE
     Indication: ANALGESIC THERAPY
     Dosage: 10 MILLIGRAM DAILY; PATIENT ABOVE 70 YEARS
     Route: 048

REACTIONS (2)
  - Depressed level of consciousness [Unknown]
  - Dizziness [Unknown]
